FAERS Safety Report 12735952 (Version 2)
Quarter: 2018Q2

REPORT INFORMATION
  Report Type: Report from Study
  Country: NO (occurrence: NO)
  Receive Date: 20160913
  Receipt Date: 20180425
  Transmission Date: 20180711
  Serious: Yes (Other)
  Sender: FDA-Public Use
  Company Number: NO-ACCORD-043772

PATIENT
  Age: 18 Year
  Sex: Male
  Weight: 71 kg

DRUGS (7)
  1. NEURONTIN [Concomitant]
     Active Substance: GABAPENTIN
     Indication: PAIN
     Dosage: 300 MG, TID
     Route: 048
     Dates: start: 201604
  2. DEXAMETHASONE. [Concomitant]
     Active Substance: DEXAMETHASONE
     Dosage: 12 MG, QD
     Route: 048
     Dates: start: 20160712, end: 20160715
  3. CALCIUM FOLINATE/FOLINIC ACID [Concomitant]
     Indication: DRUG CLEARANCE DECREASED
     Dates: start: 20160713, end: 20160713
  4. METHOTREXATE. [Suspect]
     Active Substance: METHOTREXATE
     Indication: OSTEOSARCOMA
     Dosage: 22900 MG, UNK
     Route: 042
     Dates: start: 20160712, end: 20160712
  5. APREPITANT. [Concomitant]
     Active Substance: APREPITANT
     Dosage: 8 MG, BID
     Route: 048
     Dates: start: 20160712, end: 20160715
  6. VORAXAZE [Suspect]
     Active Substance: GLUCARPIDASE
     Indication: TOXICITY TO VARIOUS AGENTS
     Dosage: 2000 IU, SINGLE
     Dates: start: 20160713, end: 20160713
  7. OXYCODONE ACTAVIS [Concomitant]
     Active Substance: OXYCODONE HYDROCHLORIDE
     Indication: PAIN
     Dosage: 5 MG, BID
     Route: 048
     Dates: start: 201604

REACTIONS (4)
  - Rebound effect [Unknown]
  - Alanine aminotransferase increased [Unknown]
  - Aspartate aminotransferase increased [Unknown]
  - Renal failure [Recovered/Resolved]

NARRATIVE: CASE EVENT DATE: 20160713
